FAERS Safety Report 9329861 (Version 1)
Quarter: 2013Q2

REPORT INFORMATION
  Report Type: Spontaneous
  Country: ES (occurrence: ES)
  Receive Date: 20130604
  Receipt Date: 20130604
  Transmission Date: 20140414
  Serious: Yes (Other)
  Sender: FDA-Public Use
  Company Number: ES-ELI_LILLY_AND_COMPANY-ES201305008286

PATIENT
  Sex: Female

DRUGS (3)
  1. FORSTEO [Suspect]
     Indication: OSTEOPOROSIS
     Dosage: 20 UG, QD
     Route: 058
     Dates: start: 2005
  2. FORSTEO [Suspect]
     Dosage: 20 UG, QD
     Route: 058
     Dates: start: 20130425
  3. HEPARIN [Concomitant]

REACTIONS (2)
  - Thrombosis [Unknown]
  - Haematoma [Unknown]
